FAERS Safety Report 12671171 (Version 1)
Quarter: 2016Q3

REPORT INFORMATION
  Report Type: Spontaneous
  Country: US (occurrence: None)
  Receive Date: 20160819
  Receipt Date: 20160819
  Transmission Date: 20161109
  Serious: Yes (Disabling)
  Sender: FDA-Public Use
  Company Number: None

PATIENT
  Age: 77 Year
  Sex: Female

DRUGS (2)
  1. CLINDAMYCIN HCL 15 MG CAPSULE, 150 MG [Suspect]
     Active Substance: CLINDAMYCIN HYDROCHLORIDE
     Indication: ARTHROPOD BITE
     Dosage: 2 TABLET EVEWRY 8 HOURS TAKEN BY MOUTH
     Route: 048
     Dates: start: 20160620, end: 20160625
  2. LEVI THYROXIN [Concomitant]

REACTIONS (4)
  - Clostridium difficile colitis [None]
  - Malaise [None]
  - Weight decreased [None]
  - Cardiac disorder [None]

NARRATIVE: CASE EVENT DATE: 20160716
